FAERS Safety Report 9292263 (Version 3)
Quarter: 2014Q4

REPORT INFORMATION
  Report Type: Spontaneous
  Country: US (occurrence: US)
  Receive Date: 20130516
  Receipt Date: 20141118
  Transmission Date: 20150529
  Serious: Yes (Hospitalization, Other)
  Sender: FDA-Public Use
  Company Number: US-BAYER-2013-058973

PATIENT
  Age: 31 Year
  Sex: Female
  Weight: 124.72 kg

DRUGS (11)
  1. YAZ [Suspect]
     Active Substance: DROSPIRENONE\ETHINYL ESTRADIOL
     Dosage: UNK
     Dates: start: 2010, end: 2011
  2. KLOR-CON [Concomitant]
     Active Substance: POTASSIUM CHLORIDE
     Dosage: 10 MEQ, UNK
  3. AMOXICILLIN. [Concomitant]
     Active Substance: AMOXICILLIN
     Dosage: 1 G, UNK
     Dates: start: 20110522
  4. FUROSEMIDE. [Concomitant]
     Active Substance: FUROSEMIDE
     Dosage: 20 MG, UNK
  5. ZANTAC [Concomitant]
     Active Substance: RANITIDINE HYDROCHLORIDE
     Dosage: 150 MG, UNK
  6. CHERATUSSIN [Concomitant]
     Active Substance: AMMONIUM CHLORIDE\DEXTROMETHORPHAN\SODIUM CITRATE
     Dosage: 10 ML, UNK
     Dates: start: 20110522
  7. FIORICET [Concomitant]
     Active Substance: ACETAMINOPHEN\BUTALBITAL\CAFFEINE
  8. CLARITIN [Concomitant]
     Active Substance: LORATADINE
     Dosage: 10 MG, UNK
     Dates: start: 20110522
  9. FLONASE [Concomitant]
     Active Substance: FLUTICASONE PROPIONATE
     Dosage: 50 ?G, UNK
     Dates: start: 20110522
  10. PEPCID [Concomitant]
     Active Substance: FAMOTIDINE
  11. MOTRIN [Concomitant]
     Active Substance: IBUPROFEN

REACTIONS (16)
  - Pulmonary embolism [Recovered/Resolved]
  - Injury [Recovered/Resolved]
  - Emotional distress [None]
  - General physical health deterioration [Recovered/Resolved]
  - Pain [None]
  - Pneumonia [None]
  - Abdominal pain [None]
  - Anxiety [None]
  - Pulmonary infarction [Recovered/Resolved]
  - Pulmonary haemorrhage [None]
  - Pain [Recovered/Resolved]
  - Abasia [Recovered/Resolved]
  - Scar [None]
  - Hypoaesthesia [None]
  - Dyspnoea [Recovered/Resolved]
  - Chest pain [None]

NARRATIVE: CASE EVENT DATE: 201106
